FAERS Safety Report 7747448-5 (Version None)
Quarter: 2011Q3

REPORT INFORMATION
  Report Type: 
  Country: None (occurrence: None)
  Receive Date: 20110913
  Receipt Date: 20110902
  Transmission Date: 20111222
  Serious: Yes (Other)
  Sender: FDA-Public Use
  Company Number: JP-B.I. PHARMACEUTICALS,INC./RIDGEFIELD-2011-BP-17459NB

PATIENT
  Age: 78 Year
  Sex: Male
  Weight: 83 kg

DRUGS (9)
  1. METFORMIN HCL [Concomitant]
     Route: 048
     Dates: start: 20100601
  2. BISOPROLOL FUMARATE [Concomitant]
     Route: 048
     Dates: start: 20100601
  3. VERAPAMIL HCL [Concomitant]
     Route: 048
     Dates: start: 20100601
  4. MIGLITOL [Concomitant]
     Route: 048
     Dates: start: 20100601
  5. RASILEZ [Concomitant]
     Route: 048
     Dates: start: 20100601
  6. JANUVIA [Concomitant]
     Route: 048
     Dates: start: 20100601
  7. PRADAXA [Suspect]
     Indication: ATRIAL FIBRILLATION
     Dosage: 225 MG
     Route: 048
     Dates: start: 20110330, end: 20110705
  8. GLUFAST [Concomitant]
     Route: 048
     Dates: start: 20100601
  9. RABEPRAZOLE SODIUM [Concomitant]
     Route: 048
     Dates: start: 20100601

REACTIONS (2)
  - GASTROINTESTINAL DISORDER [None]
  - RHABDOMYOLYSIS [None]
